FAERS Safety Report 23735712 (Version 1)
Quarter: 2024Q2

REPORT INFORMATION
  Report Type: Spontaneous
  Country: US (occurrence: None)
  Receive Date: 20240411
  Receipt Date: 20240411
  Transmission Date: 20240716
  Serious: Yes (Death)
  Sender: FDA-Public Use
  Company Number: None

PATIENT
  Age: 57 Year
  Sex: Male
  Weight: 194 kg

DRUGS (7)
  1. DIMETHYL FUMARATE [Suspect]
     Active Substance: DIMETHYL FUMARATE
     Dates: start: 20240111, end: 20240324
  2. LOSARTAN [Suspect]
     Active Substance: LOSARTAN
     Dates: start: 20240310, end: 20240324
  3. NIFEDIPINE [Suspect]
     Active Substance: NIFEDIPINE
     Dates: start: 20240310, end: 20240324
  4. LEVOTHYROXINE [Suspect]
     Active Substance: LEVOTHYROXINE\LEVOTHYROXINE SODIUM
     Dates: start: 20240310, end: 20240324
  5. PANTOPRAZOLE SODIUM [Suspect]
     Active Substance: PANTOPRAZOLE SODIUM
     Dates: start: 20231120, end: 20240324
  6. QUETIAPINE [Suspect]
     Active Substance: QUETIAPINE
     Dates: start: 20230223, end: 20240324
  7. SEVELAMER [Suspect]
     Active Substance: SEVELAMER
     Dates: start: 20230414, end: 20240324

REACTIONS (1)
  - Death [None]

NARRATIVE: CASE EVENT DATE: 20240325
